FAERS Safety Report 5825166-8 (Version None)
Quarter: 2008Q3

REPORT INFORMATION
  Report Type: 
  Country: None (occurrence: None)
  Receive Date: 20080725
  Receipt Date: 20080725
  Transmission Date: 20090109
  Serious: Yes (Life-Threatening, Hospitalization)
  Sender: FDA-Public Use
  Company Number: None

PATIENT
  Sex: Male
  Weight: 90.7194 kg

DRUGS (2)
  1. DIGOXIN [Suspect]
     Dosage: .125MG 90TABS 1 A DAY WALGREENS 4/25/2007 MEDCO 2/20/08
     Dates: start: 20070425
  2. DIGOXIN [Suspect]
     Dosage: .125MG 90TABS 1 A DAY WALGREENS 4/25/2007 MEDCO 2/20/08
     Dates: start: 20080220

REACTIONS (4)
  - AORTIC VALVE DISEASE [None]
  - ATRIAL FIBRILLATION [None]
  - CORONARY ARTERY DISEASE [None]
  - DYSPNOEA [None]
